FAERS Safety Report 17769207 (Version 2)
Quarter: 2020Q3

REPORT INFORMATION
  Report Type: Spontaneous
  Country: US (occurrence: US)
  Receive Date: 20200512
  Receipt Date: 20200703
  Transmission Date: 20201102
  Serious: Yes (Hospitalization, Other)
  Sender: FDA-Public Use
  Company Number: US-VIIV HEALTHCARE LIMITED-US2020AMR078673

PATIENT

DRUGS (1)
  1. TRIUMEQ [Suspect]
     Active Substance: ABACAVIR SULFATE\DOLUTEGRAVIR SODIUM\LAMIVUDINE
     Indication: HIV INFECTION
     Dosage: UNK
     Route: 065
     Dates: start: 2019

REACTIONS (23)
  - Gastrointestinal disorder [Unknown]
  - Anxiety [Unknown]
  - Paraesthesia [Unknown]
  - Mental disorder [Unknown]
  - Cholecystitis infective [Unknown]
  - Chronic gastritis [Unknown]
  - Oesophagitis [Unknown]
  - Suicidal ideation [Unknown]
  - Myalgia [Unknown]
  - Affective disorder [Unknown]
  - Neurotoxicity [Unknown]
  - Pulmonary embolism [Unknown]
  - Panic attack [Unknown]
  - Abdominal discomfort [Unknown]
  - Adverse drug reaction [Unknown]
  - General physical health deterioration [Unknown]
  - Visual impairment [Unknown]
  - Anxiety disorder [Unknown]
  - C-reactive protein increased [Unknown]
  - Depression [Unknown]
  - Cholecystectomy [Unknown]
  - Headache [Unknown]
  - Arthralgia [Unknown]

NARRATIVE: CASE EVENT DATE: 2019
